FAERS Safety Report 4945098-7 (Version None)
Quarter: 2006Q1

REPORT INFORMATION
  Report Type: 
  Country: None (occurrence: None)
  Receive Date: 20060314
  Receipt Date: 20060314
  Transmission Date: 20060701
  Serious: Yes (Hospitalization)
  Sender: FDA-Public Use
  Company Number: None

PATIENT
  Age: 70 Year
  Sex: Female
  Weight: 53.18 kg

DRUGS (2)
  1. CEFAZOLIN [Suspect]
     Indication: POSTOPERATIVE CARE
     Dosage: 1 GM 98 HR IV
     Route: 042
     Dates: start: 20060302, end: 20060305
  2. CEFAZOLIN [Suspect]
     Indication: PREOPERATIVE CARE
     Dosage: 1 GM 98 HR IV
     Route: 042
     Dates: start: 20060302, end: 20060305

REACTIONS (3)
  - ARTHRITIS INFECTIVE [None]
  - POOR QUALITY DRUG ADMINISTERED [None]
  - POSTOPERATIVE INFECTION [None]
